FAERS Safety Report 18005777 (Version 1)
Quarter: 2020Q3

REPORT INFORMATION
  Report Type: Spontaneous
  Country: GB (occurrence: GB)
  Receive Date: 20200710
  Receipt Date: 20200710
  Transmission Date: 20201103
  Serious: Yes (Disabling)
  Sender: FDA-Public Use
  Company Number: GB-009507513-2007GBR002170

PATIENT
  Age: 71 Year
  Sex: Female
  Weight: 68 kg

DRUGS (9)
  1. RAMIPRIL. [Concomitant]
     Active Substance: RAMIPRIL
     Dosage: 1 DOSAGE FORM, QD, TAKE AT NIGHT
     Dates: start: 20200217
  2. MONOMIL XL [Concomitant]
     Active Substance: ISOSORBIDE MONONITRATE
     Dosage: 1 DOSAGE FORM, QD, TAKE EACH MORNING
     Dates: start: 20200217
  3. NORMACOL [Concomitant]
     Active Substance: HERBALS\KARAYA GUM
     Dosage: UNK UNK, PRN,AS NECESSARY, TAKE FIVE TO TEN MLS TWICE DAILY
     Dates: start: 20200217
  4. NITROGLYCERIN. [Concomitant]
     Active Substance: NITROGLYCERIN
     Dosage: UNK, PRN, AS NECESSARY, ONE SPRAY
     Dates: start: 20200217
  5. ATORVASTATIN [Concomitant]
     Active Substance: ATORVASTATIN
     Dosage: 1 DOSAGE FORM, QD, TAKE AT NIGHT
     Dates: start: 20200217, end: 20200505
  6. CARBOMER [Concomitant]
     Active Substance: CARBOMER
     Dosage: UNK, PRN,AS NECESSARY, USE UP TP SIX TIMES DAILY BOTH EYES
     Route: 047
     Dates: start: 20200217
  7. SIMVASTATIN. [Suspect]
     Active Substance: SIMVASTATIN
     Dosage: 40 MILLIGRAM, QD, TAKE AT NIGHT
     Dates: start: 20200505
  8. BISOPROLOL [Concomitant]
     Active Substance: BISOPROLOL
     Dosage: 1 DOSAGE FORM, QD
     Dates: start: 20200217
  9. CITALOPRAM [Concomitant]
     Active Substance: CITALOPRAM HYDROBROMIDE
     Dosage: 1 DOSAGE FORM, QD
     Dates: start: 20200217

REACTIONS (3)
  - Nightmare [Recovered/Resolved]
  - Myopathy [Recovered/Resolved]
  - Myalgia [Unknown]

NARRATIVE: CASE EVENT DATE: 20200623
